FAERS Safety Report 9502452 (Version 1)
Quarter: 2013Q3

REPORT INFORMATION
  Report Type: Spontaneous
  Country: US (occurrence: US)
  Receive Date: 20130906
  Receipt Date: 20130906
  Transmission Date: 20140515
  Serious: No
  Sender: FDA-Public Use
  Company Number: US-B.I. PHARMACEUTICALS,INC./RIDGEFIELD-2013-BI-26395BP

PATIENT
  Age: 81 Year
  Sex: Female

DRUGS (13)
  1. MOBIC [Suspect]
     Indication: NEURALGIA
     Dosage: 150 MG
     Route: 048
     Dates: start: 201305, end: 201305
  2. TRAMADOL [Concomitant]
     Dosage: 300 MG
     Route: 048
  3. PREGABLIN [Concomitant]
     Dosage: 300 MG
     Route: 048
  4. DISPENSE [Concomitant]
  5. LEVOTHYROXINE [Concomitant]
     Dosage: 88 MCG
     Route: 048
  6. ACETOAMINOPHEN [Concomitant]
     Dosage: 3000 MG
     Route: 048
  7. POLYETHYLENE GLYCOL(GLYCOLAZ MIRALAX) [Concomitant]
     Dosage: 17 G
     Route: 048
  8. SENNA(SENOKOT) [Concomitant]
     Dosage: 17.2 MG
     Route: 048
  9. ASPIRIN [Concomitant]
     Dosage: 23.1429 MG
     Route: 048
  10. CALCIUM CITRATE [Concomitant]
     Dosage: 2400 MG
     Route: 048
  11. CYANOCOBALAMIN [Concomitant]
     Dosage: 500 MCG
     Route: 048
  12. BIMATOPROST [Concomitant]
     Dosage: (OPHTHALMIC SOLUTION) DAILY DOSE: 1 DROP EACH EACH EYE NIGHTLY
  13. DORZOLAMIDE [Concomitant]
     Dosage: (OPHTHALMIC SOLUTION): DAILY DOSE:1 DROP EACH EACH EYE NIGHTLY

REACTIONS (2)
  - Throat tightness [Unknown]
  - Dizziness [Recovered/Resolved]
